FAERS Safety Report 4562291-6 (Version None)
Quarter: 2005Q1

REPORT INFORMATION
  Report Type: 
  Country: None (occurrence: None)
  Receive Date: 20050121
  Receipt Date: 20050114
  Transmission Date: 20050727
  Serious: Yes (Hospitalization)
  Sender: FDA-Public Use
  Company Number: CIP03002300

PATIENT
  Age: 71 Year
  Sex: Female
  Weight: 113.5 kg

DRUGS (18)
  1. ACTONEL [Suspect]
     Indication: OSTEOPOROSIS
     Dosage: 5 MG, DAILY, ORAL
     Route: 048
     Dates: start: 20030613, end: 20030716
  2. PREDNISONE [Concomitant]
     Indication: SYSTEMIC LUPUS ERYTHEMATOSUS
     Dosage: 5 MG DAILY, ORAL
     Route: 048
     Dates: start: 19670101
  3. COUMADIN [Concomitant]
     Indication: PROPHYLAXIS
     Dosage: 5 MG DAILY, ORAL
     Route: 048
     Dates: start: 20010501
  4. CELEBREX [Suspect]
     Dosage: 200 MG DAILY, ORAL
     Route: 048
  5. ZESTRIL [Concomitant]
  6. ACETYLSALICYLIC ACID SRT [Concomitant]
  7. GLUCOPHAGE [Concomitant]
  8. GLYNASE [Concomitant]
  9. ZOLOFT [Concomitant]
  10. PROVENTIL [Concomitant]
  11. AFRIN (AMINOACETIC ACID, BENZALKONIUM CHLORIDE, OXYMETAZOLINE HYDROCHL [Concomitant]
  12. NAPROXEN [Concomitant]
  13. COMBIVENT [Concomitant]
  14. VIOXX [Concomitant]
  15. OSCAL (CALCIUM CARBONATE) [Concomitant]
  16. VITAMIN D [Concomitant]
  17. TYLENOL [Concomitant]
  18. COUGH SYRUP (ANTIMONY POTASSIUM TARTRATE, OPIUM TINCTURE, TERPIN HYDRA [Concomitant]

REACTIONS (20)
  - ABDOMINAL PAIN [None]
  - ACUTE MYOCARDIAL INFARCTION [None]
  - ANAEMIA [None]
  - ANOREXIA [None]
  - BLOOD CREATINE PHOSPHOKINASE INCREASED [None]
  - BLOOD GLUCOSE INCREASED [None]
  - BLOOD UREA INCREASED [None]
  - CARDIAC FAILURE CONGESTIVE [None]
  - CORONARY ARTERY DISEASE [None]
  - CORONARY ARTERY OCCLUSION [None]
  - DIZZINESS [None]
  - ELECTROCARDIOGRAM T WAVE ABNORMAL [None]
  - ENZYME ABNORMALITY [None]
  - GASTROINTESTINAL ULCER HAEMORRHAGE [None]
  - GLYCOSYLATED HAEMOGLOBIN INCREASED [None]
  - HYPERHIDROSIS [None]
  - NAUSEA [None]
  - PEPTIC ULCER [None]
  - TACHYCARDIA [None]
  - VOMITING [None]
